FAERS Safety Report 5742481-7 (Version None)
Quarter: 2008Q2

REPORT INFORMATION
  Report Type: 
  Country: None (occurrence: None)
  Receive Date: 20080514
  Receipt Date: 20080514
  Transmission Date: 20081010
  Serious: Yes (Hospitalization)
  Sender: FDA-Public Use
  Company Number: None

PATIENT
  Age: 62 Year
  Sex: Male

DRUGS (2)
  1. MINOXIDIL [Suspect]
     Indication: HYPERTENSION
     Dosage: 2.5 MG EVERY DAY PO
     Route: 048
     Dates: start: 20080423, end: 20080512
  2. PIROXICAM [Suspect]
     Indication: ARTHRITIS
     Dosage: 10 MG EVERY DAY PO
     Route: 048
     Dates: start: 20061012, end: 20080512

REACTIONS (2)
  - CARDIAC FAILURE CONGESTIVE [None]
  - DYSPNOEA [None]
